FAERS Safety Report 10128419 (Version 1)
Quarter: 2014Q2

REPORT INFORMATION
  Report Type: Spontaneous
  Country: FR (occurrence: FR)
  Receive Date: 20140428
  Receipt Date: 20140428
  Transmission Date: 20141212
  Serious: Yes (Life-Threatening, Hospitalization)
  Sender: FDA-Public Use
  Company Number: FR-BRISTOL-MYERS SQUIBB COMPANY-20654596

PATIENT
  Age: 63 Year
  Sex: Male

DRUGS (7)
  1. COUMADIN TABS 2 MG [Suspect]
     Dosage: 1 DF:1.5 TABLET UNIT NOS
     Route: 048
     Dates: end: 20131106
  2. SEROPLEX [Suspect]
     Dosage: SCORED FILM-COATED TABLET
     Route: 048
  3. LASILIX [Concomitant]
     Dosage: SCORED TABLET
  4. PERINDOPRIL [Concomitant]
  5. BISOPROLOL HEMIFUMARATE [Concomitant]
  6. FORADIL [Concomitant]
  7. TARDYFERON [Concomitant]

REACTIONS (3)
  - Gastrointestinal haemorrhage [Recovered/Resolved]
  - Anaemia [Recovered/Resolved]
  - Renal failure acute [Recovered/Resolved]
